FAERS Safety Report 8249415-4 (Version None)
Quarter: 2012Q2

REPORT INFORMATION
  Report Type: 
  Country: None (occurrence: None)
  Receive Date: 20120402
  Receipt Date: 20120327
  Transmission Date: 20120825
  Serious: Yes (Hospitalization)
  Sender: FDA-Public Use
  Company Number: US-AMGEN-USASP2012019827

PATIENT
  Age: 54 Year
  Sex: Female
  Weight: 111 kg

DRUGS (4)
  1. PEGASYS [Concomitant]
     Indication: HEPATITIS C
     Dosage: 180 MG, UNK
     Dates: start: 20110804
  2. RIBAVIRIN [Concomitant]
     Indication: HEPATITIS C
     Dosage: 1200 MG, UNK
     Dates: start: 20110804
  3. PROCRIT [Suspect]
     Indication: HEPATITIS C
     Dosage: 40000 IU, QWK
     Route: 058
     Dates: start: 20111101, end: 20120301
  4. NEUPOGEN [Concomitant]
     Dosage: UNK

REACTIONS (1)
  - HAEMOGLOBIN DECREASED [None]
